FAERS Safety Report 5716604-X (Version None)
Quarter: 2008Q2

REPORT INFORMATION
  Report Type: 
  Country: None (occurrence: None)
  Receive Date: 20080424
  Receipt Date: 20080417
  Transmission Date: 20081010
  Serious: Yes (Other)
  Sender: FDA-Public Use
  Company Number: US-ELI_LILLY_AND_COMPANY-US200804004832

PATIENT
  Sex: Female

DRUGS (2)
  1. HUMALOG [Suspect]
  2. NOVOLOG [Concomitant]

REACTIONS (4)
  - CEREBROVASCULAR ACCIDENT [None]
  - MEMORY IMPAIRMENT [None]
  - MENTAL IMPAIRMENT [None]
  - SPEECH DISORDER [None]
